FAERS Safety Report 24799444 (Version 2)
Quarter: 2025Q1

REPORT INFORMATION
  Report Type: Report from Study
  Country: FI (occurrence: FI)
  Receive Date: 20250102
  Receipt Date: 20250221
  Transmission Date: 20250409
  Serious: Yes (Hospitalization)
  Sender: MYLAN
  Company Number: FI-MYLANLABS-2024M1117463

PATIENT
  Sex: Female

DRUGS (11)
  1. CLOZAPINE [Suspect]
     Active Substance: CLOZAPINE
     Indication: Psychotic disorder
     Dosage: 12.5 MILLIGRAM, QD (PER DAY)
     Route: 065
     Dates: start: 20241128, end: 2024
  2. CLOZAPINE [Suspect]
     Active Substance: CLOZAPINE
     Dosage: 175 MILLIGRAM, QD
     Route: 065
     Dates: start: 20241219, end: 20241226
  3. CLOZAPINE [Suspect]
     Active Substance: CLOZAPINE
     Dosage: 200 MILLIGRAM, QD (PER DAY)
     Route: 065
     Dates: start: 20241227, end: 2025
  4. CLOZAPINE [Suspect]
     Active Substance: CLOZAPINE
     Route: 065
     Dates: start: 20250213
  5. OLANZAPINE [Concomitant]
     Active Substance: OLANZAPINE
     Dosage: 20 MILLIGRAM, QD
     Route: 065
     Dates: start: 20241019, end: 20241125
  6. OLANZAPINE [Concomitant]
     Active Substance: OLANZAPINE
     Route: 065
     Dates: start: 20241126, end: 20241218
  7. OLANZAPINE [Concomitant]
     Active Substance: OLANZAPINE
     Dosage: 10 MILLIGRAM, QD (IN THE EVENINGS)
     Route: 065
     Dates: start: 20241219, end: 20241221
  8. OLANZAPINE [Concomitant]
     Active Substance: OLANZAPINE
     Dosage: 5 MILLIGRAM, QD
     Route: 065
     Dates: start: 20241222, end: 20241225
  9. LATUDA [Concomitant]
     Active Substance: LURASIDONE HYDROCHLORIDE
     Dosage: 37 MILLIGRAM, QD (PER DAY)
     Route: 065
     Dates: start: 20241114, end: 20241127
  10. ARIPIPRAZOLE [Concomitant]
     Active Substance: ARIPIPRAZOLE
     Dosage: 7.5 MILLIGRAM, QD (PER DAY)
     Route: 065
     Dates: start: 20241223, end: 20250107
  11. ARIPIPRAZOLE [Concomitant]
     Active Substance: ARIPIPRAZOLE
     Dosage: 10 MILLIGRAM, QD (PER DAY)
     Route: 065
     Dates: start: 20250108

REACTIONS (11)
  - Dysphagia [Recovered/Resolved]
  - Abnormal behaviour [Recovered/Resolved]
  - Poor personal hygiene [Unknown]
  - Self-induced vomiting [Recovered/Resolved]
  - Throat irritation [Recovered/Resolved]
  - Feeding disorder [Recovered/Resolved]
  - Nutritional condition abnormal [Recovered/Resolved]
  - Agitation [Recovered/Resolved]
  - Neutrophil count decreased [Not Recovered/Not Resolved]
  - White blood cell count decreased [Not Recovered/Not Resolved]
  - Off label use [Not Recovered/Not Resolved]

NARRATIVE: CASE EVENT DATE: 20241128
